FAERS Safety Report 9165829 (Version 2)
Quarter: 2013Q2

REPORT INFORMATION
  Report Type: Report from Study
  Country: DE (occurrence: DE)
  Receive Date: 20130315
  Receipt Date: 20130429
  Transmission Date: 20140414
  Serious: Yes (Other)
  Sender: FDA-Public Use
  Company Number: DE-ROCHE-1201093

PATIENT
  Age: 65 Year
  Sex: Male
  Weight: 83 kg

DRUGS (8)
  1. TOCILIZUMAB [Suspect]
     Indication: RHEUMATOID ARTHRITIS
     Dosage: ON 15/AUG/2012, 13/SEP/2012, 11/OCT/2012, RECEIVED 680 MG AND ON 08/NOV/2012, 05/DEC/2012, 03/DEC/20
     Route: 042
     Dates: start: 20120711, end: 20130227
  2. METHOTREXATE [Concomitant]
     Route: 048
  3. ARCOXIA [Concomitant]
     Route: 065
  4. DEKRISTOL [Concomitant]
     Route: 065
  5. FOLSAN [Concomitant]
     Route: 065
  6. NOVORAPID [Concomitant]
     Indication: DIABETES MELLITUS
  7. PROTAPHANE [Concomitant]
     Indication: DIABETES MELLITUS
  8. L-THYROXIN [Concomitant]
     Indication: HYPERTHYROIDISM

REACTIONS (1)
  - Hepatitis [Recovered/Resolved]
